FAERS Safety Report 8269370-0 (Version None)
Quarter: 2012Q2

REPORT INFORMATION
  Report Type: 
  Country: None (occurrence: None)
  Receive Date: 20120409
  Receipt Date: 20120328
  Transmission Date: 20120825
  Serious: Yes (Hospitalization)
  Sender: FDA-Public Use
  Company Number: FR-ROCHE-1054275

PATIENT
  Sex: Female
  Weight: 52 kg

DRUGS (22)
  1. PYOSTACINE [Suspect]
     Indication: PYREXIA
  2. METEOSPASMYL [Concomitant]
  3. MABTHERA [Suspect]
     Dosage: SECOND COURSE
     Dates: start: 20080701
  4. MABTHERA [Suspect]
     Dosage: SIXTH COURSE
     Dates: start: 20100706
  5. MABTHERA [Suspect]
     Dosage: SEVENTH COURSE
     Dates: start: 20110107
  6. NEXIUM [Concomitant]
  7. COLPOSEPTINE [Concomitant]
  8. MABTHERA [Suspect]
     Dosage: THIRD COURSE
     Dates: start: 20090108
  9. MABTHERA [Suspect]
     Dosage: EIGHTH COURSE
     Dates: start: 20110708
  10. MABTHERA [Suspect]
     Dosage: NINTH COURSE
     Dates: start: 20120113
  11. METHOTREXATE [Concomitant]
  12. METHYLPREDNISOLONE [Concomitant]
  13. MABTHERA [Suspect]
     Dosage: FOURTH COURSE
     Dates: start: 20090710
  14. MABTHERA [Suspect]
     Dosage: FIFTH COURSE
     Dates: start: 20100108
  15. BIPERIDYS [Concomitant]
  16. CRANMAX [Concomitant]
     Dosage: DRUG NAME REPORTED AS GYNDELTA
  17. PYOSTACINE [Suspect]
     Indication: SINUSITIS
     Route: 048
     Dates: start: 20120118, end: 20120126
  18. FOLIC ACID [Concomitant]
  19. MABTHERA [Suspect]
     Indication: RHEUMATOID ARTHRITIS
     Route: 042
     Dates: start: 20080617
  20. PYOSTACINE [Suspect]
     Indication: HEADACHE
  21. ARTELAC [Concomitant]
  22. METHYLPREDNISOLONE [Concomitant]
     Dosage: FIRST THREE COURSES

REACTIONS (3)
  - ODYNOPHAGIA [None]
  - PYREXIA [None]
  - AGRANULOCYTOSIS [None]
